FAERS Safety Report 20338477 (Version 1)
Quarter: 2022Q1

REPORT INFORMATION
  Report Type: Spontaneous
  Country: None (occurrence: A1)
  Receive Date: 20220115
  Receipt Date: 20220115
  Transmission Date: 20220423
  Serious: Yes (Hospitalization, Other)
  Sender: FDA-Public Use
  Company Number: A1-Acella Pharmaceuticals, LLC-2123973

PATIENT
  Age: 71 Year
  Sex: Female

DRUGS (1)
  1. DOXYCYCLINE [Suspect]
     Active Substance: DOXYCYCLINE
     Indication: Pemphigoid
     Route: 065

REACTIONS (10)
  - Nausea [Recovering/Resolving]
  - Vomiting [Recovering/Resolving]
  - Oesophagitis [Unknown]
  - Acute hepatic failure [Unknown]
  - Hepatic enzyme increased [Unknown]
  - Confusional state [Unknown]
  - Hypersomnia [Unknown]
  - Jaundice [Unknown]
  - Drug-induced liver injury [Unknown]
  - Cholestatic liver injury [Unknown]
